FAERS Safety Report 7966742-6 (Version None)
Quarter: 2011Q4

REPORT INFORMATION
  Report Type: 
  Country: None (occurrence: None)
  Receive Date: 20111209
  Receipt Date: 20111205
  Transmission Date: 20120403
  Serious: No
  Sender: FDA-Public Use
  Company Number: US-BIOGENIDEC-2011BI046138

PATIENT
  Age: 47 Year
  Sex: Female

DRUGS (3)
  1. TYSABRI [Suspect]
     Route: 042
     Dates: start: 20071116, end: 20081231
  2. TYSABRI [Suspect]
     Route: 042
     Dates: start: 20090626, end: 20101220
  3. TYSABRI [Suspect]
     Indication: MULTIPLE SCLEROSIS
     Route: 042
     Dates: start: 20110902

REACTIONS (5)
  - HEADACHE [None]
  - NASOPHARYNGITIS [None]
  - DIZZINESS [None]
  - FATIGUE [None]
  - SINUS DISORDER [None]
